FAERS Safety Report 7178267-9 (Version None)
Quarter: 2010Q4

REPORT INFORMATION
  Report Type: 
  Country: None (occurrence: None)
  Receive Date: 20101220
  Receipt Date: 20101215
  Transmission Date: 20110411
  Serious: Yes (Hospitalization, Other)
  Sender: FDA-Public Use
  Company Number: FR-PFIZER INC-2010143344

PATIENT
  Age: 74 Year
  Sex: Male

DRUGS (4)
  1. TAZOCILLINE [Suspect]
     Indication: POST PROCEDURAL INFECTION
     Dosage: UNK
     Dates: start: 20101001, end: 20101112
  2. TAZOCILLINE [Suspect]
     Indication: STREPTOCOCCAL INFECTION
  3. TAZOCILLINE [Suspect]
     Indication: SEPSIS
  4. TAZOCILLINE [Suspect]
     Indication: PNEUMONIA ASPIRATION

REACTIONS (11)
  - ABDOMINAL PAIN [None]
  - ALANINE AMINOTRANSFERASE INCREASED [None]
  - AMNESIA [None]
  - ASPARTATE AMINOTRANSFERASE INCREASED [None]
  - CONFUSIONAL STATE [None]
  - DIARRHOEA [None]
  - FATIGUE [None]
  - GAMMA-GLUTAMYLTRANSFERASE INCREASED [None]
  - HALLUCINATION [None]
  - PROSTATIC ADENOMA [None]
  - URINARY RETENTION [None]
